FAERS Safety Report 20650479 (Version 3)
Quarter: 2022Q3

REPORT INFORMATION
  Report Type: Spontaneous
  Country: US (occurrence: US)
  Receive Date: 20220329
  Receipt Date: 20220808
  Transmission Date: 20221026
  Serious: Yes (Other)
  Sender: FDA-Public Use
  Company Number: US-SA-SAC20220324001441

PATIENT
  Age: 63 Year
  Sex: Female

DRUGS (4)
  1. ZANTAC [Suspect]
     Active Substance: RANITIDINE HYDROCHLORIDE
     Indication: Hyperchlorhydria
     Dosage: 150 MG
     Route: 048
     Dates: start: 20080101, end: 20190101
  2. ZANTAC [Suspect]
     Active Substance: RANITIDINE HYDROCHLORIDE
     Indication: Gastrooesophageal reflux disease
  3. ZANTAC [Suspect]
     Active Substance: RANITIDINE HYDROCHLORIDE
     Indication: Dyspepsia
  4. ZANTAC [Suspect]
     Active Substance: RANITIDINE HYDROCHLORIDE
     Indication: Abdominal discomfort

REACTIONS (12)
  - Colorectal cancer stage II [Not Recovered/Not Resolved]
  - Disease progression [Not Recovered/Not Resolved]
  - Ovarian cancer stage II [Not Recovered/Not Resolved]
  - Disease progression [Not Recovered/Not Resolved]
  - Uterine cancer [Not Recovered/Not Resolved]
  - Disease progression [Not Recovered/Not Resolved]
  - Colon cancer [Unknown]
  - Ovarian cancer [Unknown]
  - Disability [Unknown]
  - Pain [Unknown]
  - Anhedonia [Unknown]
  - Anxiety [Unknown]

NARRATIVE: CASE EVENT DATE: 20190701
